FAERS Safety Report 11821179 (Version 1)
Quarter: 2015Q4

REPORT INFORMATION
  Report Type: Spontaneous
  Country: US (occurrence: US)
  Receive Date: 20151210
  Receipt Date: 20151210
  Transmission Date: 20160305
  Serious: No
  Sender: FDA-Public Use
  Company Number: US-JNJFOC-20150711517

PATIENT
  Sex: Female

DRUGS (10)
  1. DOXEPIN HYDROCHLORIDE. [Concomitant]
     Active Substance: DOXEPIN HYDROCHLORIDE
  2. MONTELUKAST [Concomitant]
     Active Substance: MONTELUKAST SODIUM
  3. XANAX [Concomitant]
     Active Substance: ALPRAZOLAM
  4. IMBRUVICA [Suspect]
     Active Substance: IBRUTINIB
     Indication: CHRONIC LYMPHOCYTIC LEUKAEMIA
     Route: 048
     Dates: start: 20150717
  5. GLUCOSAMINE SULPHATE [Concomitant]
     Active Substance: GLUCOSAMINE
  6. RESTASIS [Concomitant]
     Active Substance: CYCLOSPORINE
  7. IMBRUVICA [Suspect]
     Active Substance: IBRUTINIB
     Indication: CHRONIC LYMPHOCYTIC LEUKAEMIA
     Route: 048
     Dates: start: 20150606, end: 20150716
  8. CALCIUM [Concomitant]
     Active Substance: CALCIUM
  9. PROTONIX [Concomitant]
     Active Substance: PANTOPRAZOLE SODIUM
  10. FLOVENT HFA [Concomitant]
     Active Substance: FLUTICASONE PROPIONATE

REACTIONS (5)
  - Oral discomfort [Not Recovered/Not Resolved]
  - Oedema peripheral [Recovering/Resolving]
  - Diarrhoea [Recovered/Resolved]
  - Rash [Unknown]
  - Anxiety [Recovering/Resolving]

NARRATIVE: CASE EVENT DATE: 2015
